FAERS Safety Report 23518274 (Version 1)
Quarter: 2024Q1

REPORT INFORMATION
  Report Type: Spontaneous
  Country: GB (occurrence: GB)
  Receive Date: 20240213
  Receipt Date: 20240213
  Transmission Date: 20240409
  Serious: Yes (Hospitalization)
  Sender: FDA-Public Use
  Company Number: None

PATIENT
  Age: 81 Year
  Sex: Male

DRUGS (13)
  1. APIXABAN [Suspect]
     Active Substance: APIXABAN
     Indication: Product used for unknown indication
     Route: 048
     Dates: start: 20230717, end: 20230723
  2. COTRIMOXAZOLE [Concomitant]
     Active Substance: SULFAMETHOXAZOLE\TRIMETHOPRIM
     Dosage: 160MG/800MG
     Route: 048
  3. NITROGLYCERIN [Concomitant]
     Active Substance: NITROGLYCERIN
  4. FERROUS SULFATE [Concomitant]
     Active Substance: FERROUS SULFATE
     Dates: start: 20240124
  5. ATORVASTATIN [Concomitant]
     Active Substance: ATORVASTATIN
     Dosage: AT NIGHT
  6. SOLIFENACIN [Concomitant]
     Active Substance: SOLIFENACIN
     Dates: end: 20240124
  7. TAMSULOSIN [Concomitant]
     Active Substance: TAMSULOSIN
     Dates: end: 20240124
  8. FOLIC ACID [Concomitant]
     Active Substance: FOLIC ACID
  9. SENNA [Concomitant]
     Active Substance: SENNA LEAF\SENNOSIDES\SENNOSIDES A AND B
  10. LACTULOSE [Concomitant]
     Active Substance: LACTULOSE
  11. FINASTERIDE [Concomitant]
     Active Substance: FINASTERIDE
     Dates: end: 20240124
  12. BISOPROLOL [Concomitant]
     Active Substance: BISOPROLOL\BISOPROLOL FUMARATE
  13. LATANOPROST [Concomitant]
     Active Substance: LATANOPROST

REACTIONS (2)
  - Haematuria traumatic [Unknown]
  - Device related infection [Unknown]

NARRATIVE: CASE EVENT DATE: 20230717
